FAERS Safety Report 8996603 (Version 3)
Quarter: 2013Q2

REPORT INFORMATION
  Report Type: Report from Study
  Country: US (occurrence: US)
  Receive Date: 20130104
  Receipt Date: 20130515
  Transmission Date: 20140414
  Serious: Yes (Hospitalization)
  Sender: FDA-Public Use
  Company Number: US-JNJFOC-20121212619

PATIENT
  Age: 16 Year
  Sex: Female
  Weight: 63.8 kg

DRUGS (9)
  1. REMICADE [Suspect]
     Indication: CROHN^S DISEASE
     Route: 042
     Dates: start: 20130115
  2. REMICADE [Suspect]
     Indication: CROHN^S DISEASE
     Route: 042
     Dates: start: 20120402
  3. REMICADE [Suspect]
     Indication: CROHN^S DISEASE
     Route: 042
     Dates: start: 20021105, end: 20090223
  4. 5-ASA [Concomitant]
  5. VITAMIN D [Concomitant]
  6. CALCIUM CARBONATE [Concomitant]
  7. MULTIVIT [Concomitant]
  8. PRILOSEC [Concomitant]
  9. VITAMIN B12 [Concomitant]

REACTIONS (1)
  - Crohn^s disease [Recovered/Resolved]
